FAERS Safety Report 5122727-9 (Version None)
Quarter: 2006Q4

REPORT INFORMATION
  Report Type: 
  Country: None (occurrence: None)
  Receive Date: 20061004
  Receipt Date: 20060920
  Transmission Date: 20070319
  Serious: No
  Sender: FDA-Public Use
  Company Number: TPG2006A00443

PATIENT
  Age: 75 Year
  Sex: Male

DRUGS (5)
  1. ACTOS [Suspect]
     Indication: DIABETES MELLITUS
     Dosage: 30 MG (30 MG, 1 IN 1 D) PER ORAL
     Route: 048
     Dates: start: 20060719, end: 20060722
  2. NOVONORM (REPAGLINIDE) [Concomitant]
  3. RAMIPRIL [Concomitant]
  4. FORADILE (FORMOTEROL FUMARATE) [Concomitant]
  5. AFONILUM (THEOPHYLLINE) [Concomitant]

REACTIONS (3)
  - ASTHENIA [None]
  - DIZZINESS [None]
  - NAUSEA [None]
